FAERS Safety Report 5937082-1 (Version None)
Quarter: 2008Q4

REPORT INFORMATION
  Report Type: 
  Country: None (occurrence: None)
  Receive Date: 20081031
  Receipt Date: 20081027
  Transmission Date: 20090506
  Serious: Yes (Hospitalization, Other)
  Sender: FDA-Public Use
  Company Number: FR-BRISTOL-MYERS SQUIBB COMPANY-14386890

PATIENT
  Age: 72 Year
  Sex: Male

DRUGS (1)
  1. HYDREA [Suspect]
     Indication: ESSENTIAL THROMBOCYTHAEMIA
     Dosage: INITIALLY AT THE DOSE OF 17 CAPSULES A WEEK, THEN, THE DOSES VARIED OVER TIME
     Route: 048
     Dates: start: 19971201

REACTIONS (5)
  - ACTINIC KERATOSIS [None]
  - BASAL CELL CARCINOMA [None]
  - DERMATOMYOSITIS [None]
  - SKIN ULCER [None]
  - SQUAMOUS CELL CARCINOMA [None]
